FAERS Safety Report 18224076 (Version 3)
Quarter: 2021Q2

REPORT INFORMATION
  Report Type: Spontaneous
  Country: US (occurrence: US)
  Receive Date: 20200902
  Receipt Date: 20210630
  Transmission Date: 20210717
  Serious: No
  Sender: FDA-Public Use
  Company Number: US-SA-2020SA236207

PATIENT
  Age: 54 Year
  Sex: Female

DRUGS (2)
  1. KEVZARA [Suspect]
     Active Substance: SARILUMAB
     Indication: RHEUMATOID ARTHRITIS
  2. KEVZARA [Suspect]
     Active Substance: SARILUMAB
     Indication: PSORIATIC ARTHROPATHY
     Dosage: 200 MG, QOW
     Route: 058
     Dates: start: 20200623

REACTIONS (7)
  - Skin infection [Unknown]
  - Product use in unapproved indication [Unknown]
  - Joint swelling [Unknown]
  - Erythema [Unknown]
  - Alopecia [Unknown]
  - Arthralgia [Unknown]
  - Acne [Unknown]

NARRATIVE: CASE EVENT DATE: 2020
